FAERS Safety Report 5814870-3 (Version None)
Quarter: 2008Q3

REPORT INFORMATION
  Report Type: 
  Country: None (occurrence: None)
  Receive Date: 20080718
  Receipt Date: 20080508
  Transmission Date: 20090109
  Serious: No
  Sender: FDA-Public Use
  Company Number: GR-AVENTIS-200814092GDDC

PATIENT
  Age: 37 Year
  Sex: Female

DRUGS (2)
  1. ARAVA [Suspect]
     Indication: RHEUMATOID ARTHRITIS
     Dates: end: 20070301
  2. ENBREL [Suspect]
     Indication: RHEUMATOID ARTHRITIS
     Dates: end: 20071001

REACTIONS (1)
  - DRUG EXPOSURE DURING PREGNANCY [None]
